FAERS Safety Report 14401672 (Version 1)
Quarter: 2018Q1

REPORT INFORMATION
  Report Type: Spontaneous
  Country: KR (occurrence: KR)
  Receive Date: 20180117
  Receipt Date: 20180117
  Transmission Date: 20180509
  Serious: Yes (Other)
  Sender: FDA-Public Use
  Company Number: KR-MYLANLABS-2018M1003028

PATIENT
  Age: 47 Year
  Sex: Female

DRUGS (2)
  1. LIDOCAINE. [Suspect]
     Active Substance: LIDOCAINE
     Indication: LOCAL ANAESTHESIA
     Dosage: UNK
     Route: 013
  2. EPINEPHRINE. [Suspect]
     Active Substance: EPINEPHRINE
     Indication: VASOCONSTRICTION
     Dosage: 1:100000 CONCENTRATION
     Route: 013

REACTIONS (9)
  - Arterial occlusive disease [Recovering/Resolving]
  - Retinal artery occlusion [Recovering/Resolving]
  - Incorrect route of drug administration [Unknown]
  - Retinal exudates [Not Recovered/Not Resolved]
  - Eye pain [Unknown]
  - Mydriasis [Unknown]
  - Retinal haemorrhage [Recovering/Resolving]
  - Eyelid ptosis [Unknown]
  - Visual impairment [Not Recovered/Not Resolved]
